FAERS Safety Report 10454450 (Version 4)
Quarter: 2014Q4

REPORT INFORMATION
  Report Type: Report from Study
  Country: JP (occurrence: JP)
  Receive Date: 20140915
  Receipt Date: 20141124
  Transmission Date: 20150528
  Serious: Yes (Life-Threatening, Hospitalization, Other)
  Sender: FDA-Public Use
  Company Number: JP-ASTRAZENECA-2014SE54707

PATIENT
  Age: 16444 Day
  Sex: Male
  Weight: 79 kg

DRUGS (9)
  1. THYRADIN-S [Concomitant]
     Active Substance: LEVOTHYROXINE
     Route: 048
     Dates: start: 20140620
  2. SEROQUEL XR [Suspect]
     Active Substance: QUETIAPINE FUMARATE
     Indication: BIPOLAR I DISORDER
     Dosage: OPEN LABEL TREATMENT PERIOD,150 MG AT BED TIME
     Route: 048
     Dates: start: 20140506, end: 20140526
  3. SEROQUEL XR [Suspect]
     Active Substance: QUETIAPINE FUMARATE
     Indication: BIPOLAR I DISORDER
     Dosage: DOSE INCREASED, 300 MG AT BED TIME
     Route: 048
     Dates: start: 20140527, end: 20140718
  4. WYPAX [Concomitant]
     Active Substance: LORAZEPAM
     Route: 048
     Dates: start: 20140107, end: 20140723
  5. SEROQUEL XR [Suspect]
     Active Substance: QUETIAPINE FUMARATE
     Indication: BIPOLAR I DISORDER
     Dosage: DOUBLE BLINDED PERIOD 150 MG DAILY
     Route: 048
     Dates: start: 20140204, end: 20140331
  6. SEROQUEL XR [Suspect]
     Active Substance: QUETIAPINE FUMARATE
     Indication: BIPOLAR I DISORDER
     Dosage: DOUBLE-BLINDED TREATMENT PERIOD II
     Route: 048
     Dates: start: 20140428, end: 20140429
  7. SEROQUEL XR [Suspect]
     Active Substance: QUETIAPINE FUMARATE
     Indication: BIPOLAR I DISORDER
     Dosage: SINGLE BLINDED TREATMENT PERIOD, 150 MG AT BED TIME
     Route: 048
     Dates: start: 20140430, end: 20140526
  8. SEROQUEL XR [Suspect]
     Active Substance: QUETIAPINE FUMARATE
     Indication: BIPOLAR I DISORDER
     Dosage: RUN-IN PHASE
     Route: 048
     Dates: start: 20140121, end: 20140204
  9. SEROQUEL XR [Suspect]
     Active Substance: QUETIAPINE FUMARATE
     Indication: BIPOLAR I DISORDER
     Dosage: DOUBLE-BLINDED TREATMENT PERIOD II
     Route: 048
     Dates: start: 20140401, end: 20140427

REACTIONS (1)
  - Rhabdomyolysis [Recovering/Resolving]

NARRATIVE: CASE EVENT DATE: 20140709
